FAERS Safety Report 8076291-5 (Version None)
Quarter: 2012Q1

REPORT INFORMATION
  Report Type: 
  Country: None (occurrence: None)
  Receive Date: 20120123
  Receipt Date: 20120111
  Transmission Date: 20120608
  Serious: Yes (Hospitalization, Other)
  Sender: FDA-Public Use
  Company Number: 2012SP002060

PATIENT
  Sex: Female

DRUGS (7)
  1. RIBAVIRIN [Suspect]
     Indication: HEPATITIS C
     Dates: start: 20090501
  2. RIBAVIRIN [Suspect]
     Indication: HEPATITIS C
     Dates: start: 20080516, end: 20081127
  3. RIBAVIRIN [Suspect]
     Indication: HEPATITIS C
     Dates: start: 20110205
  4. RIBASPHERE [Suspect]
     Indication: HEPATITIS C
  5. PEG-INTRON [Suspect]
     Indication: HEPATITIS C
     Dates: start: 20110205
  6. PEG-INTRON [Suspect]
     Indication: HEPATITIS C
     Dates: start: 20080516, end: 20081127
  7. PEG-INTRON [Suspect]
     Indication: HEPATITIS C
     Dates: start: 20090501

REACTIONS (10)
  - HEPATITIS C [None]
  - SOMNOLENCE [None]
  - MEMORY IMPAIRMENT [None]
  - SYNCOPE [None]
  - LUNG NEOPLASM [None]
  - HEADACHE [None]
  - COUGH [None]
  - DISEASE RECURRENCE [None]
  - DEHYDRATION [None]
  - CATARACT [None]
